FAERS Safety Report 8341230-6 (Version None)
Quarter: 2012Q2

REPORT INFORMATION
  Report Type: 
  Country: None (occurrence: None)
  Receive Date: 20120507
  Receipt Date: 20120423
  Transmission Date: 20120825
  Serious: Yes (Death, Hospitalization, Other)
  Sender: FDA-Public Use
  Company Number: US-MYLANLABS-2009AC000066

PATIENT
  Age: 54 Year
  Sex: Female
  Weight: 95.26 kg

DRUGS (34)
  1. ALTACE [Concomitant]
  2. DIOVAN [Concomitant]
  3. BIDIL [Concomitant]
  4. ASPIRIN [Concomitant]
  5. GLUCOPHAGE [Concomitant]
  6. METOPROLOL TARTRATE [Concomitant]
  7. VYTORIN [Concomitant]
  8. NORVASC [Concomitant]
  9. LEVEMIR [Concomitant]
  10. DIGOXIN [Suspect]
     Route: 048
     Dates: start: 20030204, end: 20090122
  11. REGLAN [Concomitant]
  12. MARCAINE HCL [Concomitant]
  13. ALLOPURINOL [Concomitant]
  14. URELLE [Concomitant]
  15. ESTER ACES [Concomitant]
  16. SYMLIN [Concomitant]
  17. DEPO-MEDROL [Concomitant]
  18. WELLBUTRIN [Concomitant]
  19. INSULIN [Concomitant]
  20. ACTOS [Concomitant]
  21. FUROSEMIDE [Concomitant]
  22. LASIX [Concomitant]
  23. KEFLEX [Concomitant]
  24. BUPROPION HCL [Concomitant]
  25. AMBIEN [Concomitant]
  26. NITROGLYCERIN [Concomitant]
  27. PROTONIX [Concomitant]
  28. TOPROL-XL [Concomitant]
  29. LIPITOR [Concomitant]
  30. PLAVIX [Concomitant]
  31. XANAX [Concomitant]
  32. DARVOCET [Concomitant]
  33. MAGNESIUM OXIDE [Concomitant]
  34. LOVENOX [Concomitant]

REACTIONS (49)
  - URETEROSCOPY [None]
  - CORONARY ARTERY DISEASE [None]
  - DYSPNOEA [None]
  - MYOCARDIAL ISCHAEMIA [None]
  - HYPERCHOLESTEROLAEMIA [None]
  - HIATUS HERNIA [None]
  - MURPHY'S SIGN POSITIVE [None]
  - CALCULUS URETERIC [None]
  - URINARY CALCULUS REMOVAL [None]
  - CYSTOSCOPY [None]
  - CHEST PAIN [None]
  - MITRAL VALVE INCOMPETENCE [None]
  - ELECTROCARDIOGRAM POOR R-WAVE PROGRESSION [None]
  - MENISCUS REMOVAL [None]
  - CARDIAC FAILURE CONGESTIVE [None]
  - LEFT VENTRICULAR DYSFUNCTION [None]
  - ANGINA PECTORIS [None]
  - CATHETERISATION CARDIAC [None]
  - ABDOMINAL PAIN [None]
  - HEPATIC STEATOSIS [None]
  - MENISCUS LESION [None]
  - URETERAL STENT REMOVAL [None]
  - URETHRAL MEATOTOMY [None]
  - DIABETES MELLITUS [None]
  - GALLSTONE ILEUS [None]
  - CARDIAC STRESS TEST ABNORMAL [None]
  - VENTRICULAR TACHYCARDIA [None]
  - GRANULOMA [None]
  - INJURY [None]
  - ILL-DEFINED DISORDER [None]
  - HYPERTENSION [None]
  - GALLBLADDER DISORDER [None]
  - RETINAL LASER COAGULATION [None]
  - GASTRITIS [None]
  - GASTROOESOPHAGEAL REFLUX DISEASE [None]
  - DIABETES MELLITUS INADEQUATE CONTROL [None]
  - BLOOD MAGNESIUM DECREASED [None]
  - FLANK PAIN [None]
  - ATELECTASIS [None]
  - ECONOMIC PROBLEM [None]
  - DEATH [None]
  - URETERIC DILATATION [None]
  - LITHOTRIPSY [None]
  - DIABETIC RETINOPATHY [None]
  - CARDIOMEGALY [None]
  - HYDRONEPHROSIS [None]
  - BLOOD URIC ACID INCREASED [None]
  - VOMITING [None]
  - NAUSEA [None]
